FAERS Safety Report 4616629-1 (Version None)
Quarter: 2005Q1

REPORT INFORMATION
  Report Type: 
  Country: None (occurrence: None)
  Receive Date: 20050321
  Receipt Date: 20030411
  Transmission Date: 20050727
  Serious: No
  Sender: FDA-Public Use
  Company Number: 6069

PATIENT
  Age: 80 Year
  Sex: Male

DRUGS (1)
  1. AMIODARONE [Suspect]
     Dosage: 200 MG PO
     Route: 048

REACTIONS (2)
  - LUNG INFILTRATION [None]
  - PNEUMONITIS [None]
